FAERS Safety Report 5867348-5 (Version None)
Quarter: 2008Q3

REPORT INFORMATION
  Report Type: 
  Country: None (occurrence: None)
  Receive Date: 20080902
  Receipt Date: 20080820
  Transmission Date: 20090109
  Serious: Yes (Hospitalization, Other)
  Sender: FDA-Public Use
  Company Number: PHHY2008FR18823

PATIENT
  Sex: Female

DRUGS (8)
  1. INIPOMP [Suspect]
     Dosage: 40 MG, QD
     Route: 048
     Dates: start: 20080201, end: 20080510
  2. STALEVO 100 [Suspect]
     Dosage: 150 MG, QD
     Route: 048
     Dates: start: 20080219, end: 20080510
  3. DEROXAT [Suspect]
     Dosage: 20 MG, QD
     Route: 048
     Dates: start: 20080219, end: 20080510
  4. IMODIUM [Suspect]
     Dosage: UNK
     Dates: end: 20080701
  5. REQUIP [Concomitant]
     Dosage: 8 MG, QD
     Route: 048
  6. SINEMET [Concomitant]
     Dosage: 25 MG, QD
     Route: 048
  7. CLOZAPINE [Concomitant]
     Dosage: 25 MG, QD
     Route: 048
     Dates: start: 20080219
  8. XANAX [Concomitant]
     Dosage: UNK
     Route: 048
     Dates: start: 20080219

REACTIONS (7)
  - ALANINE AMINOTRANSFERASE INCREASED [None]
  - ASPARTATE AMINOTRANSFERASE INCREASED [None]
  - BLOOD ALKALINE PHOSPHATASE INCREASED [None]
  - CHOLESTASIS [None]
  - CYTOLYTIC HEPATITIS [None]
  - HEPATOCELLULAR INJURY [None]
  - PROTHROMBIN TIME PROLONGED [None]
